FAERS Safety Report 9967312 (Version 2)
Quarter: 2014Q1

REPORT INFORMATION
  Report Type: Report from Study
  Country: US (occurrence: US)
  Receive Date: 20140305
  Receipt Date: 20140305
  Transmission Date: 20141002
  Serious: No
  Sender: FDA-Public Use
  Company Number: US-ABBVIE-13P-163-1111629-00

PATIENT
  Age: 62 Year
  Sex: Female

DRUGS (16)
  1. HUMIRA [Suspect]
     Indication: CROHN^S DISEASE
     Dates: start: 20130515, end: 20130515
  2. HUMIRA [Suspect]
     Dates: start: 20130529, end: 20130529
  3. HUMIRA [Suspect]
     Dates: start: 20130612, end: 20130612
  4. HUMIRA [Suspect]
     Dates: start: 20130710
  5. VITAMIN D [Concomitant]
     Indication: VITAMIN D DEFICIENCY
     Dosage: 50000 IU 2/WEEK, AND 2,000 IU DAILY
  6. VITAMIN D [Concomitant]
     Dates: end: 20130610
  7. MAGNESIUM [Concomitant]
     Indication: MAGNESIUM DEFICIENCY
  8. AZATHIOPRINE [Concomitant]
     Indication: CROHN^S DISEASE
  9. CLARINEX [Concomitant]
     Indication: SEASONAL ALLERGY
  10. OXYCODONE [Concomitant]
     Indication: PAIN
     Dosage: AT BEDTIME
  11. OXYCODONE [Concomitant]
     Indication: DIARRHOEA
  12. VITAMIN B12 [Concomitant]
     Indication: PRODUCT USED FOR UNKNOWN INDICATION
  13. COMBIVENT [Concomitant]
     Indication: ASTHMA
     Dosage: INHALER
     Route: 055
  14. FLOVENT [Concomitant]
     Indication: ASTHMA
     Dosage: INHALER
     Route: 055
  15. ALBUTEROL HFA [Concomitant]
     Indication: ASTHMA
     Dosage: INHALER
     Route: 055
  16. OXYGEN [Concomitant]
     Indication: CHRONIC OBSTRUCTIVE PULMONARY DISEASE
     Dosage: 3L WHEN AMBULATING, 2L WHEN NOT AMBULATING

REACTIONS (5)
  - Vitamin D decreased [Unknown]
  - Arthralgia [Recovering/Resolving]
  - Injection site pain [Not Recovered/Not Resolved]
  - Cough [Unknown]
  - Bone pain [Not Recovered/Not Resolved]
